FAERS Safety Report 24546590 (Version 1)
Quarter: 2024Q4

REPORT INFORMATION
  Report Type: Spontaneous
  Country: IT (occurrence: IT)
  Receive Date: 20241024
  Receipt Date: 20241024
  Transmission Date: 20250114
  Serious: Yes (Death)
  Sender: PFIZER
  Company Number: IT-ROCHE-3574420

PATIENT
  Age: 71 Year
  Sex: Male
  Weight: 80 kg

DRUGS (14)
  1. BEVACIZUMAB [Suspect]
     Active Substance: BEVACIZUMAB
     Indication: Hepatocellular carcinoma
     Dosage: 1200 MG, EVERY 3 WEEKS
     Route: 042
     Dates: start: 20240417
  2. BEVACIZUMAB [Suspect]
     Active Substance: BEVACIZUMAB
     Dosage: 1200 MG, EVERY 3 WEEKS (HE RECEIVE MOST RECENT DOSE OF BEVACIZUMAB)
     Route: 042
     Dates: start: 20240529
  3. ATEZOLIZUMAB [Suspect]
     Active Substance: ATEZOLIZUMAB
     Indication: Hepatocellular carcinoma
     Dosage: 1200 MG, EVERY 3 WEEKS
     Route: 042
     Dates: start: 20240417
  4. ATEZOLIZUMAB [Suspect]
     Active Substance: ATEZOLIZUMAB
     Dosage: 1200 MG, EVERY 3 WEEKS (HE RECEIVE MOST RECENT DOSE OF ATEZOLIZUMAB)
     Route: 042
     Dates: start: 20240529
  5. TIRAGOLUMAB [Suspect]
     Active Substance: TIRAGOLUMAB
     Indication: Hepatocellular carcinoma
     Dosage: EVERY 3 WEEKS
     Route: 042
     Dates: start: 20240417
  6. TIRAGOLUMAB [Suspect]
     Active Substance: TIRAGOLUMAB
     Dosage: EVERY 3 WEEKS (MOST RECENT DOSE OF BLINDED TIRAGOLUMAB)
     Route: 042
     Dates: start: 20240529
  7. AMLODIPINA [AMLODIPINE BESILATE] [Concomitant]
     Dosage: 5 MG, 1X/DAY
     Route: 048
     Dates: start: 20240509, end: 20240618
  8. NORVASC [Concomitant]
     Active Substance: AMLODIPINE BESYLATE
     Indication: Hypertension
     Dosage: 5 MG, 1X/DAY
     Route: 048
     Dates: start: 20240509
  9. CARVEDILOL [Concomitant]
     Active Substance: CARVEDILOL
     Dosage: 6.25 MG, 1X/DAY
     Route: 048
     Dates: start: 20240321
  10. ESOXX ONE [Concomitant]
     Dosage: 0.33 PER DAY (1 GRAIN)
     Route: 048
     Dates: start: 20240220
  11. DIAZEPAM [Concomitant]
     Active Substance: DIAZEPAM
     Dosage: 15 DROP, AS NEEDED (AS NECESSARY)
     Route: 048
     Dates: start: 20240529, end: 20240529
  12. NIFEDIPINE [Concomitant]
     Active Substance: NIFEDIPINE
     Dosage: 5 MG, AS NEEDED (AS NECESSARY)
     Route: 048
     Dates: start: 20240508, end: 20240508
  13. NIFEDIPINE [Concomitant]
     Active Substance: NIFEDIPINE
     Dosage: 5 DROP, AS NEEDED (AS NECESSARY)
     Route: 048
     Dates: start: 20240508, end: 20240508
  14. HERBALS\SAW PALMETTO [Concomitant]
     Active Substance: HERBALS\SAW PALMETTO
     Dosage: 320 MG, 1X/DAY
     Route: 048
     Dates: start: 2020, end: 20240826

REACTIONS (4)
  - Death [Fatal]
  - Infusion related reaction [Recovered/Resolved]
  - Hypertension [Recovered/Resolved]
  - Off label use [Unknown]

NARRATIVE: CASE EVENT DATE: 20240417
